FAERS Safety Report 5449770-4 (Version None)
Quarter: 2007Q3

REPORT INFORMATION
  Report Type: 
  Country: None (occurrence: None)
  Receive Date: 20070910
  Receipt Date: 20070824
  Transmission Date: 20080115
  Serious: Yes (Life-Threatening, Hospitalization)
  Sender: FDA-Public Use
  Company Number: GXKR2007GB07390

PATIENT
  Age: 37 Year
  Sex: Female

DRUGS (4)
  1. PARACETAMOL (NGX)(PARACETAMOL) UNKNOWN [Suspect]
     Indication: INCORRECT DOSE ADMINISTERED
     Dosage: 30 G, ONCE/SINGLE
  2. METHADONE HCL [Suspect]
     Indication: INCORRECT DOSE ADMINISTERED
     Dosage: 60 MG, ONCE/SINGLE
  3. ACETYLCYSTEINE (NGX)(ACETYLCYSTEINE) UNKNOWN [Suspect]
     Dosage: INTRAVENOUS
     Route: 042
  4. CARBAMAZEPINE [Concomitant]

REACTIONS (8)
  - ACUTE HEPATIC FAILURE [None]
  - BLOOD CREATININE INCREASED [None]
  - BLOOD PRESSURE INCREASED [None]
  - DRUG INEFFECTIVE [None]
  - INCORRECT DRUG ADMINISTRATION DURATION [None]
  - LACERATION [None]
  - LIVER TRANSPLANT [None]
  - MULTIPLE DRUG OVERDOSE [None]
